FAERS Safety Report 11593342 (Version 1)
Quarter: 2015Q4

REPORT INFORMATION
  Report Type: Spontaneous
  Country: NO (occurrence: NO)
  Receive Date: 20151005
  Receipt Date: 20151005
  Transmission Date: 20160304
  Serious: Yes (Other)
  Sender: FDA-Public Use
  Company Number: CHPA2015NO011443

PATIENT
  Age: 52 Year
  Sex: Female

DRUGS (2)
  1. OTRIVIN [Suspect]
     Active Substance: XYLOMETAZOLINE
     Indication: NASOPHARYNGITIS
     Dosage: UNK
     Route: 065
  2. OTRIVIN [Suspect]
     Active Substance: XYLOMETAZOLINE
     Indication: NASAL CONGESTION

REACTIONS (5)
  - Incorrect dose administered [Unknown]
  - Drug dependence [Not Recovered/Not Resolved]
  - Incorrect drug administration duration [Unknown]
  - Nasal congestion [Unknown]
  - Dyspnoea [Unknown]
